FAERS Safety Report 14018324 (Version 1)
Quarter: 2017Q3

REPORT INFORMATION
  Report Type: Spontaneous
  Country: US (occurrence: US)
  Receive Date: 20170927
  Receipt Date: 20170927
  Transmission Date: 20171128
  Serious: Yes (Life-Threatening, Hospitalization, Disabling)
  Sender: FDA-Public Use
  Company Number: None

PATIENT
  Sex: Male
  Weight: 90 kg

DRUGS (10)
  1. INSULIN PUMP [Concomitant]
     Active Substance: INSULIN NOS
  2. BUMEX [Concomitant]
     Active Substance: BUMETANIDE
  3. CORLANOR [Suspect]
     Active Substance: IVABRADINE HYDROCHLORIDE
     Indication: DIABETIC CARDIOMYOPATHY
     Dosage: ?          QUANTITY:1 TABLET(S);?
     Route: 048
  4. HUMALOG [Concomitant]
     Active Substance: INSULIN LISPRO
  5. ALDACTONE [Concomitant]
     Active Substance: SPIRONOLACTONE
  6. CORLANOR [Suspect]
     Active Substance: IVABRADINE HYDROCHLORIDE
     Indication: RESTRICTIVE CARDIOMYOPATHY
     Dosage: ?          QUANTITY:1 TABLET(S);?
     Route: 048
  7. VALSARTAN. [Concomitant]
     Active Substance: VALSARTAN
  8. CYMBALTA [Concomitant]
     Active Substance: DULOXETINE HYDROCHLORIDE
  9. KNOT-CON [Concomitant]
  10. LUNESTA [Concomitant]
     Active Substance: ESZOPICLONE

REACTIONS (6)
  - Drug tolerance increased [None]
  - Malaise [None]
  - Hyperglycaemia [None]
  - Blood glucose fluctuation [None]
  - Thirst [None]
  - Glycosylated haemoglobin increased [None]

NARRATIVE: CASE EVENT DATE: 20170911
